FAERS Safety Report 23742331 (Version 5)
Quarter: 2024Q4

REPORT INFORMATION
  Report Type: Spontaneous
  Country: US (occurrence: US)
  Receive Date: 20240415
  Receipt Date: 20241129
  Transmission Date: 20250115
  Serious: No
  Sender: PFIZER
  Company Number: US-PFIZER INC-PV202400047084

PATIENT
  Age: 8 Year
  Sex: Male

DRUGS (1)
  1. GENOTROPIN [Suspect]
     Active Substance: SOMATROPIN
     Dosage: 1.0 MG, DAILY

REACTIONS (5)
  - Drug intolerance [Unknown]
  - Device leakage [Unknown]
  - Product preparation error [Unknown]
  - Device physical property issue [Unknown]
  - Drug dose omission by device [Unknown]
